FAERS Safety Report 9117744 (Version 2)
Quarter: 2013Q2

REPORT INFORMATION
  Report Type: Report from Study
  Country: JP (occurrence: JP)
  Receive Date: 20130225
  Receipt Date: 20130610
  Transmission Date: 20140414
  Serious: Yes (Disabling, Other)
  Sender: FDA-Public Use
  Company Number: JP-009507513-1302JPN010042

PATIENT
  Age: 63 Year
  Sex: Male
  Weight: 50 kg

DRUGS (10)
  1. PEGINTRON [Suspect]
     Indication: CHRONIC HEPATITIS C
     Dosage: 1.5 MICROGRAM PER KILOGRAM, QW
     Route: 058
     Dates: start: 20120822, end: 20121116
  2. REBETOL [Suspect]
     Indication: CHRONIC HEPATITIS C
     Dosage: 400 MG, QD
     Route: 048
     Dates: start: 20120822, end: 20120920
  3. REBETOL [Suspect]
     Dosage: 600 MG, QD
     Route: 048
     Dates: start: 20120921
  4. REBETOL [Suspect]
     Dosage: 800 MG, QD
     Route: 048
     Dates: end: 20121120
  5. TELAVIC [Suspect]
     Indication: CHRONIC HEPATITIS C
     Dosage: 2250 MG, QD
     Route: 048
     Dates: start: 20120822, end: 20120905
  6. TELAVIC [Suspect]
     Dosage: 1500 MG, QD
     Route: 048
     Dates: start: 20120906, end: 20121113
  7. ALOSITOL [Concomitant]
     Indication: PROPHYLAXIS
     Dosage: 100 MG, QD
     Route: 048
     Dates: start: 20120822, end: 20121120
  8. SYMBICORT [Concomitant]
     Indication: ASTHMA
     Dosage: UNK, BID, FORMULATION:INH
     Route: 055
     Dates: start: 20120822
  9. AMLODIN OD [Concomitant]
     Indication: HYPERTENSION
     Dosage: 1 DF, QD
     Route: 048
     Dates: start: 20120823, end: 20120920
  10. MYSLEE [Concomitant]
     Indication: ADVERSE DRUG REACTION
     Dosage: 1 DF, QD
     Route: 048
     Dates: start: 20120903, end: 20121011

REACTIONS (3)
  - Anaemia [Recovered/Resolved]
  - Retinal haemorrhage [Recovered/Resolved with Sequelae]
  - Haemoglobin decreased [Recovered/Resolved]
